FAERS Safety Report 9040120 (Version 1)
Quarter: 2013Q1

REPORT INFORMATION
  Report Type: Report from Study
  Country: US (occurrence: US)
  Receive Date: 20130130
  Receipt Date: 20130130
  Transmission Date: 20140127
  Serious: Yes (Hospitalization, Other)
  Sender: FDA-Public Use
  Company Number: US-ABBOTT-12P-163-0950752-00

PATIENT
  Age: 41 Year
  Sex: Male

DRUGS (4)
  1. HUMIRA 40 MG/0.8 ML PEN [Suspect]
     Indication: CROHN^S DISEASE
  2. HUMIRA 40 MG/0.8 ML PEN [Suspect]
     Dosage: LOADING DOSE
     Dates: start: 20120626
  3. BUDESONIDE [Concomitant]
     Indication: CROHN^S DISEASE
     Dosage: 2 PILLS ONCE A DAY; TOTAL 6MG
  4. UNKNOWN VARIOUS VITAMINS [Concomitant]
     Indication: PRODUCT USED FOR UNKNOWN INDICATION
     Dosage: DAILY

REACTIONS (4)
  - Intestinal resection [Recovered/Resolved]
  - Intestinal anastomosis [Unknown]
  - Alopecia [Unknown]
  - Crohn^s disease [Unknown]
